FAERS Safety Report 6327683-3 (Version None)
Quarter: 2009Q3

REPORT INFORMATION
  Report Type: 
  Country: None (occurrence: None)
  Receive Date: 20090825
  Receipt Date: 20090817
  Transmission Date: 20100115
  Serious: Yes (Other)
  Sender: FDA-Public Use
  Company Number: PHHY2009CA29635

PATIENT
  Sex: Female

DRUGS (7)
  1. RASILEZ [Suspect]
     Indication: HYPERTENSION
     Dosage: 150 MG, QD
     Route: 048
     Dates: start: 20090613, end: 20090617
  2. RASILEZ [Suspect]
     Indication: DIABETES MELLITUS
  3. HUMULIN 70/30 [Concomitant]
     Dosage: 28 U EACH MORNING
  4. DIOVAN HCT [Concomitant]
     Dosage: 1 DF (12.5/160 MG), QD
  5. HUMULIN N [Concomitant]
     Dosage: 30 U, PRN
  6. ASPIRIN [Concomitant]
     Dosage: 81 G, QD
  7. ADALAT [Concomitant]
     Dosage: 30 MG, QD

REACTIONS (1)
  - NON-CARDIAC CHEST PAIN [None]
